FAERS Safety Report 9916643 (Version 1)
Quarter: 2014Q1

REPORT INFORMATION
  Report Type: Spontaneous
  Country: US (occurrence: US)
  Receive Date: 20140221
  Receipt Date: 20140221
  Transmission Date: 20141002
  Serious: No
  Sender: FDA-Public Use
  Company Number: US-BAYER-2014-025910

PATIENT
  Age: 63 Year
  Sex: Female

DRUGS (1)
  1. CLIMARA [Suspect]
     Indication: HOT FLUSH
     Dosage: 0.06 MG
     Route: 062

REACTIONS (3)
  - Metrorrhagia [Not Recovered/Not Resolved]
  - Product adhesion issue [None]
  - Abdominal distension [Not Recovered/Not Resolved]
